FAERS Safety Report 6122580-0 (Version None)
Quarter: 2009Q1

REPORT INFORMATION
  Report Type: 
  Country: None (occurrence: None)
  Receive Date: 20090316
  Receipt Date: 20090316
  Transmission Date: 20090719
  Serious: Yes (Disabling)
  Sender: FDA-Public Use
  Company Number: None

PATIENT
  Age: 72 Year
  Sex: Female
  Weight: 82.5547 kg

DRUGS (1)
  1. NORVASC [Suspect]
     Indication: HYPERTENSION
     Dosage: 1 TABLET DAILEY
     Dates: start: 20080214, end: 20080417

REACTIONS (2)
  - ATRIOVENTRICULAR BLOCK COMPLETE [None]
  - HEART RATE DECREASED [None]
